FAERS Safety Report 24995796 (Version 2)
Quarter: 2025Q1

REPORT INFORMATION
  Report Type: Report from Study
  Country: US (occurrence: US)
  Receive Date: 20250221
  Receipt Date: 20250314
  Transmission Date: 20250408
  Serious: Yes (Other)
  Sender: BAYER HEALTHCARE PHARMACEUTICALS INC.
  Company Number: US-BAYER-2025A020579

PATIENT
  Age: 86 Year
  Sex: Male

DRUGS (2)
  1. NUBEQA [Suspect]
     Active Substance: DAROLUTAMIDE
     Indication: Prostate cancer
     Dates: start: 20231201, end: 20250110
  2. ELIGARD [Concomitant]
     Active Substance: LEUPROLIDE ACETATE
     Dates: start: 20240330

REACTIONS (10)
  - Loss of consciousness [None]
  - Road traffic accident [None]
  - Seizure [None]
  - Metastases to lung [None]
  - Knee operation [None]
  - Metastases to central nervous system [None]
  - Lymphadenopathy mediastinal [None]
  - Intracranial mass [None]
  - Back disorder [Not Recovered/Not Resolved]
  - General physical health deterioration [None]

NARRATIVE: CASE EVENT DATE: 20241006
